FAERS Safety Report 15499120 (Version 1)
Quarter: 2018Q4

REPORT INFORMATION
  Report Type: Spontaneous
  Country: US (occurrence: US)
  Receive Date: 20181006
  Receipt Date: 20181006
  Transmission Date: 20190205
  Serious: No
  Sender: FDA-Public Use
  Company Number: None

PATIENT
  Age: 67 Year
  Sex: Male
  Weight: 90.45 kg

DRUGS (9)
  1. METFORMIN [Concomitant]
     Active Substance: METFORMIN HYDROCHLORIDE
  2. HYDROCHOLOF [Concomitant]
  3. DILTIAZEM. [Concomitant]
     Active Substance: DILTIAZEM
  4. MULTIVITAMIN [Concomitant]
     Active Substance: VITAMINS
  5. BABY ASPIRIN [Concomitant]
     Active Substance: ASPIRIN
  6. LOSARTAN. [Concomitant]
     Active Substance: LOSARTAN
  7. BREO ELLIPTA [Suspect]
     Active Substance: FLUTICASONE FUROATE\VILANTEROL TRIFENATATE
     Indication: IDIOPATHIC PULMONARY FIBROSIS
     Route: 048
  8. WELCHOL [Concomitant]
     Active Substance: COLESEVELAM HYDROCHLORIDE
  9. METOPROLOL SUCCIN [Concomitant]
     Active Substance: METOPROLOL SUCCINATE

REACTIONS (2)
  - Dyspnoea [None]
  - Lung infection [None]

NARRATIVE: CASE EVENT DATE: 20180928
